FAERS Safety Report 4695513-1 (Version None)
Quarter: 2005Q2

REPORT INFORMATION
  Report Type: 
  Country: None (occurrence: None)
  Receive Date: 20050620
  Receipt Date: 20050620
  Transmission Date: 20051028
  Serious: Yes (Death, Hospitalization)
  Sender: FDA-Public Use
  Company Number: None

PATIENT
  Age: 84 Year
  Sex: Male
  Weight: 76.2043 kg

DRUGS (1)
  1. COUMADIN [Suspect]
     Indication: ATRIAL FIBRILLATION
     Dosage: 7.5 AND 3.75    7.5X6,  3.75 X 1    ORAL
     Route: 048
     Dates: start: 19981209, end: 20050412

REACTIONS (10)
  - CEREBRAL HAEMORRHAGE [None]
  - DYSPNOEA [None]
  - FACIAL PALSY [None]
  - FEELING ABNORMAL [None]
  - GAIT DISTURBANCE [None]
  - HEMIPARESIS [None]
  - INTERNATIONAL NORMALISED RATIO INCREASED [None]
  - NAUSEA [None]
  - PROTHROMBIN TIME PROLONGED [None]
  - WHEEZING [None]
